FAERS Safety Report 7511224-9 (Version None)
Quarter: 2011Q2

REPORT INFORMATION
  Report Type: 
  Country: None (occurrence: None)
  Receive Date: 20110531
  Receipt Date: 20110518
  Transmission Date: 20111010
  Serious: Yes (Other)
  Sender: FDA-Public Use
  Company Number: JP-JNJFOC-20110500695

PATIENT
  Age: 80 Year
  Sex: Female

DRUGS (2)
  1. GALANTAMINE HYDROBROMIDE [Suspect]
     Route: 048
     Dates: start: 20110408
  2. GALANTAMINE HYDROBROMIDE [Suspect]
     Indication: DEMENTIA ALZHEIMER'S TYPE
     Route: 048
     Dates: start: 20110510

REACTIONS (1)
  - PNEUMONIA [None]
